FAERS Safety Report 6413983-5 (Version None)
Quarter: 2009Q4

REPORT INFORMATION
  Report Type: 
  Country: None (occurrence: None)
  Receive Date: 20091026
  Receipt Date: 20091015
  Transmission Date: 20100525
  Serious: Yes (Hospitalization, Other)
  Sender: FDA-Public Use
  Company Number: US-JNJFOC-20091005349

PATIENT
  Sex: Female
  Weight: 68.04 kg

DRUGS (3)
  1. FENTANYL TRANSDERMAL SYSTEM [Suspect]
     Dosage: 100 UG/HR PLUS 50 UG/HR PATCH
     Route: 062
  2. FENTANYL TRANSDERMAL SYSTEM [Suspect]
     Indication: PAIN
     Route: 062
  3. FENTANYL TRANSDERMAL SYSTEM [Suspect]
     Indication: ABDOMINAL PAIN
     Route: 062

REACTIONS (10)
  - DEPRESSION [None]
  - DRUG INEFFECTIVE [None]
  - EYELID FUNCTION DISORDER [None]
  - FALL [None]
  - INAPPROPRIATE SCHEDULE OF DRUG ADMINISTRATION [None]
  - JOINT INJURY [None]
  - MUSCLE CONTRACTURE [None]
  - READING DISORDER [None]
  - THERAPEUTIC RESPONSE UNEXPECTED [None]
  - THERMAL BURN [None]
